FAERS Safety Report 8655384 (Version 2)
Quarter: 2012Q4

REPORT INFORMATION
  Report Type: 
  Country: DE (occurrence: DE)
  Receive Date: 20120709
  Receipt Date: 20121210
  Transmission Date: 20130627
  Serious: Yes (Life-Threatening, Hospitalization)
  Sender: FDA-Public Use
  Company Number: DE-B.I. PHARMACEUTICALS,INC./RIDGEFIELD-2012-DE-01605DE

PATIENT
  Age: 82 Year
  Sex: Female
  Weight: 47 kg

DRUGS (5)
  1. PRADAXA [Suspect]
     Indication: ATRIAL FIBRILLATION
     Dosage: 110 mg
     Dates: start: 20120202, end: 20120416
  2. BISOPROLOL [Concomitant]
     Indication: HYPERTENSION
     Dosage: 2.5 mg
     Route: 048
  3. DELIX PLUS [Concomitant]
     Indication: HYPERTENSION
     Dosage: 5 mg
     Route: 048
  4. ALLOPURINOL [Concomitant]
     Indication: HYPERURICAEMIA
     Dosage: 100 mg
     Route: 048
  5. PRAVASTATIN [Concomitant]
     Indication: HYPERCHOLESTEROLAEMIA
     Dosage: 20 mg
     Route: 048

REACTIONS (1)
  - Renal failure acute [Recovered/Resolved]
